FAERS Safety Report 16676262 (Version 1)
Quarter: 2019Q3

REPORT INFORMATION
  Report Type: Spontaneous
  Country: PL (occurrence: PL)
  Receive Date: 20190807
  Receipt Date: 20190807
  Transmission Date: 20191004
  Serious: Yes (Hospitalization)
  Sender: FDA-Public Use
  Company Number: PL-SUN PHARMACEUTICAL INDUSTRIES LTD-2019RR-216608

PATIENT
  Sex: Female

DRUGS (7)
  1. AMOXICILLIN. [Concomitant]
     Active Substance: AMOXICILLIN
     Indication: PEPTIC ULCER
     Dosage: ()
     Route: 065
     Dates: start: 201602
  2. METRONIDAZOLE. [Concomitant]
     Active Substance: METRONIDAZOLE
     Indication: PEPTIC ULCER
     Dosage: ()
     Route: 065
     Dates: start: 201602
  3. ESOMEPRAZOLE. [Suspect]
     Active Substance: ESOMEPRAZOLE MAGNESIUM
     Indication: PEPTIC ULCER
     Dosage: ()
     Route: 065
     Dates: start: 201602
  4. AMIKACIN. [Concomitant]
     Active Substance: AMIKACIN
     Indication: ENTEROBACTER INFECTION
     Dosage: ()
     Route: 065
  5. VANCOMYCIN [Concomitant]
     Active Substance: VANCOMYCIN
     Indication: CLOSTRIDIUM DIFFICILE INFECTION
     Dosage: START DATE: NA-MAR/APR-2016 ()
     Route: 048
  6. CEFTRIAXONE. [Concomitant]
     Active Substance: CEFTRIAXONE
     Indication: ENTEROBACTER INFECTION
     Dosage: ()
     Route: 065
     Dates: start: 201603
  7. METRONIDAZOLE. [Concomitant]
     Active Substance: METRONIDAZOLE
     Indication: CLOSTRIDIUM DIFFICILE INFECTION
     Dosage: START DATE: NA-MAR/APR-2016
     Route: 042

REACTIONS (2)
  - Arteriosclerosis [Unknown]
  - Clostridium difficile infection [Recovered/Resolved]

NARRATIVE: CASE EVENT DATE: 20160324
